FAERS Safety Report 8541533-6 (Version None)
Quarter: 2012Q3

REPORT INFORMATION
  Report Type: 
  Country: None (occurrence: None)
  Receive Date: 20120726
  Receipt Date: 20120404
  Transmission Date: 20120928
  Serious: No
  Sender: FDA-Public Use
  Company Number: US-MUTUAL PHARMACEUTICAL COMPANY, INC.-CLCY20120055

PATIENT
  Sex: Female

DRUGS (5)
  1. COLCRYS [Suspect]
     Indication: BEHCET'S SYNDROME
     Route: 048
     Dates: start: 20120327
  2. CLARITIN (CHILDRENS) [Concomitant]
     Indication: SEASONAL ALLERGY
     Route: 048
  3. PREDNISONE [Suspect]
     Indication: AUTOIMMUNE DISORDER
     Route: 048
     Dates: start: 20120402
  4. PREDNISONE [Suspect]
     Route: 048
     Dates: start: 20120328, end: 20120330
  5. PREDNISONE [Suspect]
     Route: 048
     Dates: start: 20120331, end: 20120401

REACTIONS (2)
  - NAUSEA [None]
  - OFF LABEL USE [None]
